FAERS Safety Report 5063078-0 (Version None)
Quarter: 2006Q3

REPORT INFORMATION
  Report Type: 
  Country: None (occurrence: None)
  Receive Date: 20060724
  Receipt Date: 20060712
  Transmission Date: 20061208
  Serious: Yes (Hospitalization)
  Sender: FDA-Public Use
  Company Number: HQWYE853112JUL06

PATIENT
  Age: 50 Year
  Sex: Male

DRUGS (4)
  1. RAPAMUNE [Suspect]
     Dosage: ORAL
     Route: 048
  2. BARACLUDE [Suspect]
  3. NABI-HB [Suspect]
     Indication: LIVER TRANSPLANT
     Dosage: SEE IMAGE
  4. CELLCEPT [Concomitant]

REACTIONS (1)
  - RENAL FAILURE CHRONIC [None]
